FAERS Safety Report 18716774 (Version 2)
Quarter: 2021Q1

REPORT INFORMATION
  Report Type: Spontaneous
  Country: US (occurrence: US)
  Receive Date: 20210108
  Receipt Date: 20210108
  Transmission Date: 20210419
  Serious: No
  Sender: FDA-Public Use
  Company Number: US-JNJFOC-20201249745

PATIENT
  Sex: Female
  Weight: 48.12 kg

DRUGS (1)
  1. TYLENOL 8 HR ARTHRITIS PAIN [Suspect]
     Active Substance: ACETAMINOPHEN
     Indication: ARTHRALGIA
     Dosage: 2 PILLS THREE TIMES A DAY
     Route: 048
     Dates: start: 20180101, end: 20200901

REACTIONS (1)
  - Drug ineffective [Unknown]
